FAERS Safety Report 7367213-0 (Version None)
Quarter: 2011Q1

REPORT INFORMATION
  Report Type: 
  Country: None (occurrence: None)
  Receive Date: 20110322
  Receipt Date: 20110316
  Transmission Date: 20110831
  Serious: Yes (Hospitalization, Other)
  Sender: FDA-Public Use
  Company Number: JP-PFIZER INC-2011058412

PATIENT
  Age: 51 Year
  Sex: Male

DRUGS (2)
  1. VIAGRA [Suspect]
     Indication: ERECTILE DYSFUNCTION
     Dosage: UNK
     Route: 048
     Dates: start: 20101105, end: 20101105
  2. TEGRETOL [Concomitant]
     Indication: EPILEPSY
     Route: 048

REACTIONS (3)
  - HYPERAMMONAEMIA [None]
  - NASOPHARYNGITIS [None]
  - EPILEPSY [None]
